FAERS Safety Report 6146106-0 (Version None)
Quarter: 2009Q2

REPORT INFORMATION
  Report Type: 
  Country: None (occurrence: None)
  Receive Date: 20090407
  Receipt Date: 20090329
  Transmission Date: 20091009
  Serious: Yes (Other)
  Sender: FDA-Public Use
  Company Number: AU-JNJFOC-20090307479

PATIENT
  Sex: Male

DRUGS (1)
  1. TOPAMAX [Suspect]
     Indication: DRUG USE FOR UNKNOWN INDICATION
     Route: 048

REACTIONS (8)
  - AMNESIA [None]
  - CHEST PAIN [None]
  - DIARRHOEA HAEMORRHAGIC [None]
  - DISTURBANCE IN ATTENTION [None]
  - FATIGUE [None]
  - GOUT [None]
  - PARAESTHESIA [None]
  - VISION BLURRED [None]
